FAERS Safety Report 7568895-0 (Version None)
Quarter: 2011Q2

REPORT INFORMATION
  Report Type: 
  Country: None (occurrence: None)
  Receive Date: 20110623
  Receipt Date: 20110621
  Transmission Date: 20111010
  Serious: Yes (Hospitalization)
  Sender: FDA-Public Use
  Company Number: US-PFIZER INC-2011137429

PATIENT
  Sex: Female
  Weight: 32.653 kg

DRUGS (1)
  1. ADVIL LIQUI-GELS [Suspect]
     Indication: PYREXIA
     Dosage: 200 MG, DAILY
     Route: 048
     Dates: start: 20110607, end: 20110607

REACTIONS (1)
  - ANAPHYLACTIC REACTION [None]
